FAERS Safety Report 5224914-8 (Version None)
Quarter: 2007Q1

REPORT INFORMATION
  Report Type: 
  Country: None (occurrence: None)
  Receive Date: 20070131
  Receipt Date: 20070110
  Transmission Date: 20070707
  Serious: Yes (Death)
  Sender: FDA-Public Use
  Company Number: PHBS2006JP19861

PATIENT
  Age: 46 Year
  Sex: Female
  Weight: 38 kg

DRUGS (7)
  1. FEMARA [Suspect]
     Indication: BREAST CANCER
     Dosage: 2.5 MG, QD
     Route: 048
     Dates: start: 20060903, end: 20060916
  2. DUROTEP JANSSEN [Concomitant]
  3. LOXONIN [Concomitant]
  4. MARZULENE S [Concomitant]
  5. NAPROXEN [Concomitant]
  6. NAVELBINE [Concomitant]
  7. ARIMIDEX [Concomitant]

REACTIONS (7)
  - ALANINE AMINOTRANSFERASE INCREASED [None]
  - ASPARTATE AMINOTRANSFERASE INCREASED [None]
  - MALIGNANT NEOPLASM PROGRESSION [None]
  - METASTASES TO BONE [None]
  - METASTASES TO LIVER [None]
  - METASTASES TO LUNG [None]
  - ORAL INTAKE REDUCED [None]
